FAERS Safety Report 10028612 (Version 1)
Quarter: 2014Q1

REPORT INFORMATION
  Report Type: Spontaneous
  Country: US (occurrence: US)
  Receive Date: 20140321
  Receipt Date: 20140321
  Transmission Date: 20141002
  Serious: Yes (Hospitalization, Other)
  Sender: FDA-Public Use
  Company Number: US-BAYER-2014-041069

PATIENT
  Age: 22 Year
  Sex: Female

DRUGS (1)
  1. MIRENA [Suspect]
     Indication: CONTRACEPTION
     Dosage: 20 MCG/24HR, CONT
     Route: 015
     Dates: start: 20101213, end: 201310

REACTIONS (15)
  - Pelvic inflammatory disease [None]
  - Coital bleeding [None]
  - Uterine cyst [None]
  - Pain [None]
  - Endometriosis [None]
  - Uterine disorder [None]
  - Vaginal haemorrhage [None]
  - Abdominal pain lower [None]
  - Dizziness [None]
  - Nausea [None]
  - Back pain [None]
  - Migraine [None]
  - Anaemia [None]
  - Urticaria [None]
  - Device expulsion [None]
